FAERS Safety Report 8586458-5 (Version None)
Quarter: 2012Q3

REPORT INFORMATION
  Report Type: 
  Country: None (occurrence: None)
  Receive Date: 20120810
  Receipt Date: 20120112
  Transmission Date: 20120928
  Serious: Yes (Other)
  Sender: FDA-Public Use
  Company Number: US-ROCHE-GNE272502

PATIENT
  Sex: Female
  Weight: 50 kg

DRUGS (2)
  1. XOLAIR [Suspect]
     Indication: RHINITIS SEASONAL
  2. XOLAIR [Suspect]
     Indication: ASTHMA
     Dosage: UNK, Q2W
     Route: 058

REACTIONS (3)
  - ASTHMA [None]
  - MALAISE [None]
  - BLOOD IMMUNOGLOBULIN E INCREASED [None]
